FAERS Safety Report 20770051 (Version 1)
Quarter: 2022Q2

REPORT INFORMATION
  Report Type: Spontaneous
  Country: US (occurrence: US)
  Receive Date: 20220429
  Receipt Date: 20220429
  Transmission Date: 20220721
  Serious: Yes (Hospitalization)
  Sender: FDA-Public Use
  Company Number: US-PFIZER INC-202200611058

PATIENT
  Age: 89 Year
  Sex: Male

DRUGS (1)
  1. VYNDAQEL [Suspect]
     Active Substance: TAFAMIDIS MEGLUMINE
     Dosage: UNK

REACTIONS (5)
  - Fall [Unknown]
  - Wrong technique in product usage process [Unknown]
  - Off label use [Unknown]
  - Product dose omission issue [Unknown]
  - Dysphagia [Unknown]

NARRATIVE: CASE EVENT DATE: 20220401
